FAERS Safety Report 21404607 (Version 2)
Quarter: 2022Q4

REPORT INFORMATION
  Report Type: Spontaneous
  Country: DE (occurrence: DE)
  Receive Date: 20221003
  Receipt Date: 20221019
  Transmission Date: 20230112
  Serious: Yes (Hospitalization)
  Sender: FDA-Public Use
  Company Number: None

PATIENT
  Age: 55 Year
  Sex: Male
  Weight: 142.2 kg

DRUGS (6)
  1. HYDROCORTISONE [Suspect]
     Active Substance: HYDROCORTISONE
     Indication: Product used for unknown indication
     Dosage: 3-1.5-0.5-0
     Route: 048
  2. TESTOSTERONE [Suspect]
     Active Substance: TESTOSTERONE
     Indication: Product used for unknown indication
     Dosage: 1-0-0-0
     Route: 062
  3. LEVOTHYROXINE SODIUM [Suspect]
     Active Substance: LEVOTHYROXINE SODIUM
     Indication: Product used for unknown indication
     Dosage: 100 UG, 1-0-0-0, LEVOTHYROXINE NATRIUM
     Route: 048
  4. PHENPROCOUMON [Concomitant]
     Active Substance: PHENPROCOUMON
     Indication: Product used for unknown indication
     Dosage: 3 MG, EITHER HALF OR A WHOLE TABLET IN THE EVENING
     Route: 048
  5. SOTALOL [Concomitant]
     Active Substance: SOTALOL
     Indication: Product used for unknown indication
     Dosage: 160 MG, 1-0-1-0
     Route: 048
  6. VALDOXAN [Concomitant]
     Active Substance: AGOMELATINE
     Indication: Product used for unknown indication
     Dosage: 0-0-0-2
     Route: 048

REACTIONS (9)
  - Weight bearing difficulty [Unknown]
  - Chest discomfort [Unknown]
  - Nausea [Unknown]
  - Flank pain [Unknown]
  - Gastrointestinal pain [Unknown]
  - Vomiting [Unknown]
  - Dyspnoea [Unknown]
  - Oedema peripheral [Unknown]
  - Therapeutic drug monitoring analysis not performed [Unknown]
